FAERS Safety Report 7973309-2 (Version None)
Quarter: 2011Q4

REPORT INFORMATION
  Report Type: 
  Country: None (occurrence: None)
  Receive Date: 20111213
  Receipt Date: 20111206
  Transmission Date: 20120403
  Serious: Yes (Life-Threatening)
  Sender: FDA-Public Use
  Company Number: GB-B.I. PHARMACEUTICALS,INC./RIDGEFIELD-2011-BP-27841YA

PATIENT
  Age: 92 Year
  Sex: Male
  Weight: 61.68 kg

DRUGS (16)
  1. ASTRAGALUS GUMMIFER (ASTRAGALUS GUMMIFER) [Concomitant]
     Dosage: 10 ML
  2. MULTIVITAMIN [Concomitant]
  3. ECHINACEA (ECHINACEA PURPUREA EXTRACT) [Concomitant]
     Dosage: 10 ML
  4. TAMSULOSIN HCL [Suspect]
     Indication: BLADDER OBSTRUCTION
     Route: 048
     Dates: start: 20111118
  5. ERYTHROMYCIN [Concomitant]
     Indication: URINARY TRACT INFECTION
  6. SAW PALMETTO (SERENOA REPENS) [Concomitant]
  7. LEVOTHYROXINE SODIUM [Concomitant]
  8. YARROW (ACHILLEA MILLEFOLIUM) [Concomitant]
     Dosage: 10 ML
  9. GOLDEN SEAL (HYDRASTIS CANADENSIS) [Concomitant]
     Dosage: 300 MG
  10. HORSE RADISH (ARMORACIA RUSTICANA) [Concomitant]
     Dosage: 10 ML
  11. ZEA MAYS (ZEA MAYS) [Concomitant]
     Dosage: 10 ML
  12. GINGER (ZINGIBER OFFICINALE RHIZOME) [Concomitant]
     Dosage: 10 ML
  13. SILYBUM MARIANUM (SILYBUM MARIANUM) [Concomitant]
     Dosage: 10 ML
  14. BEE POLLEN (BEE POLLEN) [Concomitant]
  15. ERYTHROMYCIN [Concomitant]
     Indication: BRONCHITIS
  16. EQUISETUM ARVENSE (EQUISETUM ARVENSE) [Concomitant]
     Dosage: 10 ML

REACTIONS (2)
  - INCONTINENCE [None]
  - CARDIAC DISORDER [None]
